FAERS Safety Report 5928626-4 (Version None)
Quarter: 2008Q3

REPORT INFORMATION
  Report Type: 
  Country: None (occurrence: None)
  Receive Date: 20080923
  Receipt Date: 20080130
  Transmission Date: 20090109
  Serious: Yes (Disabling)
  Sender: FDA-Public Use
  Company Number: WAES 0801USA06024

PATIENT
  Age: 54 Year
  Sex: Female
  Weight: 83.4619 kg

DRUGS (4)
  1. VYTORIN [Suspect]
     Indication: BLOOD CHOLESTEROL INCREASED
     Dosage: 10-80 MG/DAILY/PO
     Route: 048
     Dates: start: 20070101, end: 20080116
  2. ALTACE [Concomitant]
  3. DIOVAN [Concomitant]
  4. GLUCOPHAGE [Concomitant]

REACTIONS (1)
  - MYALGIA [None]
